FAERS Safety Report 14766186 (Version 2)
Quarter: 2018Q2

REPORT INFORMATION
  Report Type: Spontaneous
  Country: US (occurrence: US)
  Receive Date: 20180416
  Receipt Date: 20180416
  Transmission Date: 20180711
  Serious: No
  Sender: FDA-Public Use
  Company Number: US-ASTELLAS-2017US027311

PATIENT
  Age: 60 Year
  Sex: Female

DRUGS (3)
  1. PROGRAF [Suspect]
     Active Substance: TACROLIMUS\TACROLIMUS ANHYDROUS
     Dosage: 1 MG, TWICE DAILY (TOTAL DOSE: 1 MG AM AND 1.5 MG PM EVERY DAY)
     Route: 048
     Dates: start: 2014
  2. PROGRAF [Suspect]
     Active Substance: TACROLIMUS\TACROLIMUS ANHYDROUS
     Indication: RENAL TRANSPLANT
     Dosage: UNK UNK, UNKNOWN FREQ.
     Route: 048
     Dates: start: 2004
  3. PROGRAF [Suspect]
     Active Substance: TACROLIMUS\TACROLIMUS ANHYDROUS
     Indication: RENAL TRANSPLANT
     Dosage: 0.5 MG, ONCE DAILY (TOTAL DOSE: 1 MG AM AND 1.5 MG PM EVERY DAY)
     Route: 048
     Dates: start: 2014

REACTIONS (1)
  - Product storage error [Unknown]
